FAERS Safety Report 7024128-5 (Version None)
Quarter: 2010Q4

REPORT INFORMATION
  Report Type: 
  Country: None (occurrence: None)
  Receive Date: 20101001
  Receipt Date: 20100921
  Transmission Date: 20110411
  Serious: Yes (Other)
  Sender: FDA-Public Use
  Company Number: US-ROCHE-714139

PATIENT
  Sex: Female
  Weight: 63.5 kg

DRUGS (16)
  1. TOCILIZUMAB [Suspect]
     Indication: RHEUMATOID ARTHRITIS
     Dosage: FORM: INFUSION; DOSE UNIT: MG/KG;
     Route: 042
     Dates: start: 20070215, end: 20100603
  2. TOCILIZUMAB [Suspect]
     Route: 042
     Dates: start: 20100311
  3. TOCILIZUMAB [Suspect]
     Route: 042
     Dates: start: 20100408
  4. TOCILIZUMAB [Suspect]
     Route: 042
     Dates: start: 20100506
  5. TOCILIZUMAB [Suspect]
     Route: 042
     Dates: start: 20100603
  6. BLINDED TOCILIZUMAB [Suspect]
     Indication: RHEUMATOID ARTHRITIS
     Dosage: PATIENT WAS ENROLLED IN STUDY WA18062 IN PAST
     Route: 042
  7. METHOTREXATE [Concomitant]
  8. LOVASTATIN [Concomitant]
  9. COUMADIN [Concomitant]
     Dosage: DOSE: 10 MG ON THURSAY AND SUNDAY. 7.5 MG ON MON, TUE, WED, FRI AND SAT.
  10. ASPIRIN [Concomitant]
     Route: 048
  11. LISINOPRIL [Concomitant]
  12. LISINOPRIL [Concomitant]
  13. HYDROCHLOROTHIAZIDE [Concomitant]
     Route: 048
  14. METFORMIN [Concomitant]
     Route: 048
  15. FOLIC ACID [Concomitant]
     Route: 048
  16. LANOXIN [Concomitant]
     Route: 048

REACTIONS (1)
  - CEREBRAL INFARCTION [None]
